FAERS Safety Report 7034542-X (Version None)
Quarter: 2010Q4

REPORT INFORMATION
  Report Type: 
  Country: None (occurrence: None)
  Receive Date: 20101008
  Receipt Date: 20100928
  Transmission Date: 20110411
  Serious: Yes (Death)
  Sender: FDA-Public Use
  Company Number: IE-JNJFOC-20100908868

PATIENT
  Age: 56 Year
  Sex: Female

DRUGS (12)
  1. INFLIXIMAB, RECOMBINANT [Suspect]
     Indication: RHEUMATOID ARTHRITIS
     Route: 042
  2. RITUXIMAB [Concomitant]
     Indication: RHEUMATOID ARTHRITIS
  3. RITUXIMAB [Concomitant]
  4. SULPHASALAZINE [Concomitant]
  5. HYDROXYCHLOROQUINE [Concomitant]
  6. PREDNISOLONE [Concomitant]
  7. ALENDRONATE SODIUM [Concomitant]
  8. SEROQUEL [Concomitant]
  9. SEROQUEL [Concomitant]
  10. PROTIUM [Concomitant]
  11. VALDOXAN (AGOMELATINE) [Concomitant]
  12. ELTROXIN [Concomitant]

REACTIONS (3)
  - ADVERSE EVENT [None]
  - COMPLETED SUICIDE [None]
  - DRUG INEFFECTIVE [None]
